FAERS Safety Report 13376842 (Version 1)
Quarter: 2017Q1

REPORT INFORMATION
  Report Type: Spontaneous
  Country: US (occurrence: US)
  Receive Date: 20170328
  Receipt Date: 20170328
  Transmission Date: 20170429
  Serious: Yes (Other)
  Sender: FDA-Public Use
  Company Number: None

PATIENT
  Age: 47 Year
  Sex: Female
  Weight: 58.5 kg

DRUGS (1)
  1. FAMOTIDINE 20NG [Suspect]
     Active Substance: FAMOTIDINE
     Indication: PHARYNGEAL ULCERATION
     Dosage: ?          QUANTITY:60 TABLET(S);?
     Route: 048
     Dates: start: 20170310

REACTIONS (2)
  - Mouth ulceration [None]
  - Blood blister [None]

NARRATIVE: CASE EVENT DATE: 20170315
